FAERS Safety Report 8250701-2 (Version None)
Quarter: 2012Q2

REPORT INFORMATION
  Report Type: 
  Country: None (occurrence: None)
  Receive Date: 20120402
  Receipt Date: 20120326
  Transmission Date: 20120825
  Serious: Yes (Hospitalization)
  Sender: FDA-Public Use
  Company Number: US-PFIZER INC-2012077488

PATIENT
  Sex: Female
  Weight: 78.5 kg

DRUGS (1)
  1. DEPO-PROVERA [Suspect]
     Indication: CONTRACEPTION
     Dosage: UNK, ONCE IN THREE MONTHS
     Route: 030
     Dates: start: 20120103, end: 20120101

REACTIONS (2)
  - THROMBOSIS [None]
  - PULMONARY EMBOLISM [None]
